FAERS Safety Report 7723816-2 (Version None)
Quarter: 2011Q3

REPORT INFORMATION
  Report Type: 
  Country: None (occurrence: None)
  Receive Date: 20110901
  Receipt Date: 20110824
  Transmission Date: 20111222
  Serious: Yes (Hospitalization, Other)
  Sender: FDA-Public Use
  Company Number: PHHY2009JP09961

PATIENT
  Sex: Female
  Weight: 58 kg

DRUGS (23)
  1. EXJADE [Suspect]
     Dosage: 500 MG,
     Route: 048
     Dates: start: 20090626, end: 20090917
  2. EXJADE [Suspect]
     Dosage: 1000 MG,
     Route: 048
     Dates: start: 20100123, end: 20100205
  3. NEORAL [Suspect]
     Dosage: 10 MG, UNK
     Route: 048
     Dates: end: 20090918
  4. MUCOSTA [Concomitant]
     Indication: PROPHYLAXIS
     Dosage: 300 MG, UNK
     Route: 048
     Dates: start: 20080827
  5. FLUCONAZOLE [Concomitant]
     Dosage: 200 MG, UNK
     Route: 048
     Dates: start: 20080101
  6. NATEGLINIDE [Concomitant]
     Dosage: 180 MG, UNK
     Route: 048
     Dates: start: 20080731
  7. RED BLOOD CELLS, CONCENTRATED [Concomitant]
     Dosage: 2 U, QW
     Dates: start: 20090116, end: 20090130
  8. NEORAL [Suspect]
     Dosage: 70 MG, DAILY
     Route: 048
     Dates: start: 20090327
  9. BONAMINE [Concomitant]
     Indication: PROPHYLAXIS
     Dosage: 35 MG, UNK
     Route: 048
     Dates: start: 20080104
  10. RED BLOOD CELLS, CONCENTRATED [Concomitant]
     Dosage: 2 U, QW
     Dates: start: 20080909, end: 20081007
  11. RED BLOOD CELLS, CONCENTRATED [Concomitant]
     Dosage: 2 U, QW2
     Dates: start: 20090130, end: 20090130
  12. NEORAL [Suspect]
     Dosage: 65 MG DAILY
     Route: 048
     Dates: start: 20081002, end: 20081007
  13. NEORAL [Suspect]
     Dosage: 110 MG, DAILY
     Route: 048
     Dates: start: 20090214
  14. PREDNISOLONE [Concomitant]
     Dosage: 14 MG, UNK
     Dates: start: 20080823
  15. EXJADE [Suspect]
     Dosage: 500 MG,
     Route: 048
     Dates: start: 20091211, end: 20091225
  16. EXJADE [Suspect]
     Dosage: 625 MG, DAILY
     Route: 048
     Dates: start: 20091226, end: 20100122
  17. EXJADE [Suspect]
     Dosage: 500 MG
     Route: 048
     Dates: start: 20100206, end: 20100723
  18. MIYA-BM [Concomitant]
     Dosage: 3 G, UNK
     Route: 048
     Dates: start: 20080411
  19. EXJADE [Suspect]
     Indication: ACUTE MYELOID LEUKAEMIA
     Dosage: 500 MG, QD
     Route: 048
     Dates: start: 20080827, end: 20080901
  20. NEORAL [Suspect]
     Indication: ACUTE MYELOID LEUKAEMIA
     Dosage: 110 MG, DAILY
     Route: 048
     Dates: start: 20080826, end: 20081001
  21. NEORAL [Suspect]
     Dosage: 130 MG, DAILY
     Route: 048
     Dates: start: 20081008, end: 20090130
  22. ZOVIRAX [Concomitant]
     Dosage: 600 MG, UNK
     Route: 048
     Dates: start: 20080411
  23. RED BLOOD CELLS, CONCENTRATED [Concomitant]
     Dosage: 2 U, QW3
     Dates: start: 20081007, end: 20090116

REACTIONS (14)
  - ALANINE AMINOTRANSFERASE INCREASED [None]
  - BRONCHITIS [None]
  - RETINAL HAEMORRHAGE [None]
  - NASOPHARYNGITIS [None]
  - MUSCULAR WEAKNESS [None]
  - LIVER DISORDER [None]
  - GAMMA-GLUTAMYLTRANSFERASE INCREASED [None]
  - DECREASED APPETITE [None]
  - RENAL IMPAIRMENT [None]
  - BLOOD ALKALINE PHOSPHATASE INCREASED [None]
  - ASPARTATE AMINOTRANSFERASE INCREASED [None]
  - PYREXIA [None]
  - RASH PRURITIC [None]
  - ASTHENIA [None]
